FAERS Safety Report 14603312 (Version 1)
Quarter: 2018Q1

REPORT INFORMATION
  Report Type: Spontaneous
  Country: US (occurrence: US)
  Receive Date: 20180305
  Receipt Date: 20180305
  Transmission Date: 20180509
  Serious: No
  Sender: FDA-Public Use
  Company Number: None

PATIENT
  Age: 24 Year
  Sex: Female
  Weight: 52.16 kg

DRUGS (3)
  1. LEXAPRO [Concomitant]
     Active Substance: ESCITALOPRAM OXALATE
  2. VISIRAL [Concomitant]
  3. NEXPLANON [Suspect]
     Active Substance: ETONOGESTREL
     Dates: start: 20170710

REACTIONS (4)
  - Autoimmune thyroiditis [None]
  - Anxiety [None]
  - Hypothyroidism [None]
  - Device use issue [None]

NARRATIVE: CASE EVENT DATE: 20180113
